FAERS Safety Report 5981770-8 (Version None)
Quarter: 2008Q4

REPORT INFORMATION
  Report Type: 
  Country: None (occurrence: None)
  Receive Date: 20081205
  Receipt Date: 20081128
  Transmission Date: 20090506
  Serious: Yes (Hospitalization)
  Sender: FDA-Public Use
  Company Number: JP-B.I. PHARMACEUTICALS,INC./RIDGEFIELD-2008-BP-15956NB

PATIENT
  Age: 72 Year
  Sex: Female

DRUGS (3)
  1. BI-SIFROL TABLETS [Suspect]
     Indication: PARKINSON'S DISEASE
     Dosage: 1.5MG
     Route: 048
  2. LEVODOPA [Concomitant]
     Dosage: 600MG
     Route: 065
  3. QUETIAPINE FUMARATE [Concomitant]
     Dosage: 100MG
     Route: 065

REACTIONS (3)
  - DELUSION [None]
  - HALLUCINATION [None]
  - PARKINSON'S DISEASE [None]
